FAERS Safety Report 8471179-X (Version None)
Quarter: 2012Q2

REPORT INFORMATION
  Report Type: 
  Country: None (occurrence: None)
  Receive Date: 20120627
  Receipt Date: 20120618
  Transmission Date: 20120825
  Serious: Yes (Other)
  Sender: FDA-Public Use
  Company Number: US-BAYER-2012-060972

PATIENT
  Age: 29 Year
  Sex: Female
  Weight: 91 kg

DRUGS (6)
  1. TRILEPTAL [Concomitant]
  2. CELEXA [Concomitant]
  3. BUSPAR [Concomitant]
  4. ACETAMINOPHEN, ASPIRIN AND CAFFEINE [Suspect]
     Dosage: CONSUMER TOOK 100 VANQUISH.
     Route: 048
     Dates: start: 20120618
  5. OXCARBAZEPINE [Concomitant]
  6. PHENERGAN [Concomitant]

REACTIONS (5)
  - ABDOMINAL PAIN UPPER [None]
  - NAUSEA [None]
  - EAR CONGESTION [None]
  - SOMNOLENCE [None]
  - TINNITUS [None]
